FAERS Safety Report 7043919-8 (Version None)
Quarter: 2010Q4

REPORT INFORMATION
  Report Type: 
  Country: None (occurrence: None)
  Receive Date: 20101012
  Receipt Date: 20101012
  Transmission Date: 20110411
  Serious: Yes (Hospitalization)
  Sender: FDA-Public Use
  Company Number: None

PATIENT
  Age: 56 Year
  Sex: Female

DRUGS (2)
  1. CYMBALTA [Suspect]
     Dosage: 1 CASULE DAILY PO
     Route: 048
     Dates: start: 20100604, end: 20100706
  2. TRAMADOL HCL [Suspect]
     Indication: JOINT INJURY
     Dosage: 1 TABLET Q4H PRN PO
     Route: 048
     Dates: start: 20100625, end: 20100706

REACTIONS (1)
  - SEROTONIN SYNDROME [None]
